FAERS Safety Report 4578812-3 (Version None)
Quarter: 2005Q1

REPORT INFORMATION
  Report Type: 
  Country: None (occurrence: None)
  Receive Date: 20050211
  Receipt Date: 20050131
  Transmission Date: 20050727
  Serious: Yes (Other)
  Sender: FDA-Public Use
  Company Number: US-BRISTOL-MYERS SQUIBB COMPANY-12853743

PATIENT
  Age: 67 Year
  Sex: Male

DRUGS (7)
  1. ERBITUX [Suspect]
     Indication: SQUAMOUS CELL CARCINOMA OF SKIN
     Dosage: 24TH DOSE ON 31-JAN-2005
  2. NEURONTIN [Concomitant]
  3. MINIPRESS [Concomitant]
  4. LEXAPRO [Concomitant]
  5. VICODIN [Concomitant]
  6. GLUCOPHAGE [Concomitant]
  7. CELEBREX [Concomitant]

REACTIONS (1)
  - BLOOD MAGNESIUM DECREASED [None]
